FAERS Safety Report 11426552 (Version 2)
Quarter: 2015Q3

REPORT INFORMATION
  Report Type: Spontaneous
  Country: US (occurrence: US)
  Receive Date: 20150827
  Receipt Date: 20150903
  Transmission Date: 20151125
  Serious: Yes (Hospitalization)
  Sender: FDA-Public Use
  Company Number: US-BAXALTA-2015BLT001272

PATIENT
  Sex: Female
  Weight: 76.36 kg

DRUGS (6)
  1. GAMMAGARD LIQUID [Suspect]
     Active Substance: HUMAN IMMUNOGLOBULIN G
     Indication: OFF LABEL USE
  2. DIAZEPAM. [Concomitant]
     Active Substance: DIAZEPAM
     Indication: PRODUCT USED FOR UNKNOWN INDICATION
  3. GAMMAGARD LIQUID [Suspect]
     Active Substance: HUMAN IMMUNOGLOBULIN G
     Indication: STIFF PERSON SYNDROME
     Dosage: 75 G, EVERY OTHER WEEK
     Route: 042
     Dates: start: 2013
  4. BACLOFEN. [Concomitant]
     Active Substance: BACLOFEN
     Indication: PRODUCT USED FOR UNKNOWN INDICATION
  5. SALINE [Concomitant]
     Active Substance: SODIUM CHLORIDE
     Indication: STIFF PERSON SYNDROME
     Dosage: UNK, EVERY OTHER WEEK
     Route: 042
     Dates: start: 2013
  6. FENTANYL. [Concomitant]
     Active Substance: FENTANYL
     Indication: PRODUCT USED FOR UNKNOWN INDICATION

REACTIONS (6)
  - Migraine [Recovered/Resolved]
  - Nausea [Recovered/Resolved]
  - Thrombosis [Recovered/Resolved]
  - Thrombosis in device [Recovered/Resolved]
  - Medication error [Recovered/Resolved]
  - Headache [Recovered/Resolved]

NARRATIVE: CASE EVENT DATE: 2014
